FAERS Safety Report 14528126 (Version 2)
Quarter: 2018Q1

REPORT INFORMATION
  Report Type: Spontaneous
  Country: US (occurrence: US)
  Receive Date: 20180213
  Receipt Date: 20180326
  Transmission Date: 20180509
  Serious: No
  Sender: FDA-Public Use
  Company Number: US-ELI_LILLY_AND_COMPANY-US201802000994

PATIENT
  Sex: Female

DRUGS (2)
  1. FORTEO [Suspect]
     Active Substance: TERIPARATIDE
     Indication: PRODUCT USED FOR UNKNOWN INDICATION
     Dosage: UNK UNK, UNKNOWN
     Route: 065
     Dates: start: 201710
  2. FORTEO [Suspect]
     Active Substance: TERIPARATIDE
     Dosage: UNK UNK, UNKNOWN
     Route: 065

REACTIONS (9)
  - Adrenal disorder [Unknown]
  - Negative thoughts [Unknown]
  - Stress [Unknown]
  - Drug dose omission [Unknown]
  - Hypokinesia [Unknown]
  - Pain [Unknown]
  - Abdominal discomfort [Unknown]
  - General physical condition abnormal [Unknown]
  - Fatigue [Unknown]
